FAERS Safety Report 17817783 (Version 1)
Quarter: 2020Q2

REPORT INFORMATION
  Report Type: Spontaneous
  Country: NL (occurrence: NL)
  Receive Date: 20200522
  Receipt Date: 20200522
  Transmission Date: 20200714
  Serious: Yes (Death, Life-Threatening, Other)
  Sender: FDA-Public Use
  Company Number: NL-MYLANLABS-2020M1050859

PATIENT
  Sex: Female

DRUGS (5)
  1. PIPERACILLIN/TAZOBACTAM [Suspect]
     Active Substance: PIPERACILLIN SODIUM\TAZOBACTAM SODIUM
     Indication: PNEUMONIA
     Dosage: 3 X PER DAG 4500 MG
     Dates: start: 20200118, end: 20200122
  2. MORFINE [Concomitant]
     Active Substance: MORPHINE
     Dosage: INJECTIEVLOEISTOF, 10 MG/ML (MILLIGRAM PER MILLILITER)
  3. NADROPARINE [Concomitant]
     Active Substance: NADROPARIN
     Dosage: INJECTIEVLOEISTOF, 9500 IE/ML (EENHEDEN PER MILLILITER)
  4. METFORMINE                         /00082701/ [Concomitant]
     Active Substance: METFORMIN HYDROCHLORIDE
     Dosage: TABLET MET GEREGULEERDE AFGIFTE, 500 MG (MILLIGRAM)
  5. SALBUTAMOL [Concomitant]
     Active Substance: ALBUTEROL
     Dosage: VERNEVELVLOEISTOF, 1 MG/ML (MILLIGRAM PER MILLILITER)

REACTIONS (1)
  - Acute kidney injury [Fatal]
